FAERS Safety Report 9077860 (Version 2)
Quarter: 2013Q2

REPORT INFORMATION
  Report Type: Spontaneous
  Country: JP (occurrence: JP)
  Receive Date: 20130130
  Receipt Date: 20130425
  Transmission Date: 20140414
  Serious: Yes (Other)
  Sender: FDA-Public Use
  Company Number: JP-009507513-1301JPN012791

PATIENT
  Age: 70 Year
  Sex: Male

DRUGS (2)
  1. MENESIT TABLETS - 100 [Suspect]
     Indication: PARKINSON^S DISEASE
     Dosage: 1 DF, TID
     Route: 048
     Dates: start: 20130112, end: 20130112
  2. LANIRAPID [Concomitant]
     Dosage: 0.1 MG, QAM
     Route: 048
     Dates: start: 20130112

REACTIONS (1)
  - Loss of consciousness [Recovered/Resolved]
